FAERS Safety Report 24315997 (Version 1)
Quarter: 2024Q3

REPORT INFORMATION
  Report Type: Spontaneous
  Country: AU (occurrence: AU)
  Receive Date: 20240913
  Receipt Date: 20240913
  Transmission Date: 20241016
  Serious: Yes (Other)
  Sender: RANBAXY
  Company Number: AU-SUN PHARMACEUTICAL INDUSTRIES LTD-2024R1-467700

PATIENT
  Age: 58 Year
  Sex: Male

DRUGS (2)
  1. DASATINIB [Suspect]
     Active Substance: DASATINIB
     Indication: Chronic eosinophilic leukaemia
     Dosage: UNK
     Route: 065
     Dates: start: 200704, end: 2018
  2. IMATINIB [Suspect]
     Active Substance: IMATINIB
     Indication: Chronic eosinophilic leukaemia
     Dosage: UNK
     Route: 065
     Dates: start: 200406

REACTIONS (4)
  - Leukaemia recurrent [Unknown]
  - Drug ineffective [Unknown]
  - Pleural effusion [Unknown]
  - White blood cell count increased [Recovering/Resolving]

NARRATIVE: CASE EVENT DATE: 20240101
